FAERS Safety Report 25429872 (Version 1)
Quarter: 2025Q2

REPORT INFORMATION
  Report Type: Spontaneous
  Country: NL (occurrence: NL)
  Receive Date: 20250612
  Receipt Date: 20250612
  Transmission Date: 20250716
  Serious: Yes (Other)
  Sender: Vantive US Healthcare
  Company Number: NL-VANTIVE-2025VAN002603

PATIENT

DRUGS (1)
  1. REGIOCIT [Suspect]
     Active Substance: SODIUM CHLORIDE\SODIUM CITRATE
     Indication: Anticoagulant therapy
     Route: 065

REACTIONS (5)
  - Hepatic failure [Unknown]
  - Sepsis [Unknown]
  - Hypercalcaemia [Unknown]
  - Blood lactic acid abnormal [Unknown]
  - Acidosis [Unknown]
